FAERS Safety Report 8886362 (Version 1)
Quarter: 2012Q4

REPORT INFORMATION
  Report Type: 
  Country: US (occurrence: US)
  Receive Date: 20121105
  Receipt Date: 20121105
  Transmission Date: 20130627
  Serious: Yes (Hospitalization)
  Sender: FDA-Public Use
  Company Number: US-GLAXOSMITHKLINE-A0791920A

PATIENT
  Age: 56 Year
  Sex: Male

DRUGS (2)
  1. AVANDAMET [Suspect]
     Indication: TYPE 2 DIABETES MELLITUS
     Route: 048
     Dates: start: 20030717, end: 200804
  2. AVANDIA [Suspect]
     Indication: TYPE 2 DIABETES MELLITUS
     Dosage: 2MG Twice per day
     Route: 048
     Dates: start: 20060109, end: 20060531

REACTIONS (2)
  - Cerebrovascular accident [Not Recovered/Not Resolved]
  - Cardiovascular disorder [Unknown]
